FAERS Safety Report 8578053-9 (Version None)
Quarter: 2012Q3

REPORT INFORMATION
  Report Type: 
  Country: None (occurrence: None)
  Receive Date: 20120808
  Receipt Date: 20120804
  Transmission Date: 20120928
  Serious: No
  Sender: FDA-Public Use
  Company Number: PHEH2012US012421

PATIENT
  Sex: Male
  Weight: 121.9 kg

DRUGS (8)
  1. METFORMIN HYDROCHLORIDE [Concomitant]
  2. LEVOTHYROXINE SODIUM [Concomitant]
  3. FISH OIL [Concomitant]
  4. LISINOPRIL [Concomitant]
  5. ASPIRIN [Concomitant]
  6. SIMVASTATIN [Concomitant]
     Dosage: 80 MG, UNK
  7. TASIGNA [Suspect]
     Dosage: 300 MG, BID
     Route: 048
  8. GLYBURIDE [Concomitant]

REACTIONS (5)
  - PRODUCT QUALITY ISSUE [None]
  - LIVER FUNCTION TEST ABNORMAL [None]
  - MUSCLE SPASMS [None]
  - RENAL IMPAIRMENT [None]
  - PRODUCT PACKAGING ISSUE [None]
